FAERS Safety Report 4647428-2 (Version None)
Quarter: 2005Q2

REPORT INFORMATION
  Report Type: 
  Country: None (occurrence: None)
  Receive Date: 20050426
  Receipt Date: 20550411
  Transmission Date: 20051028
  Serious: Yes (Hospitalization)
  Sender: FDA-Public Use
  Company Number: 2002CG00766

PATIENT
  Sex: Female

DRUGS (5)
  1. NOLVADEX [Suspect]
     Indication: BREAST CANCER
     Dosage: 20 MG QD PO
     Route: 048
     Dates: end: 20010715
  2. FUROSEMIDE [Concomitant]
  3. AMIODARONE HCL [Concomitant]
  4. LYSINE ACETYLSALICYLATE [Concomitant]
  5. NIFEDIPINE [Concomitant]

REACTIONS (4)
  - CUTANEOUS LUPUS ERYTHEMATOSUS [None]
  - EPIDERMAL NECROSIS [None]
  - LICHENOID KERATOSIS [None]
  - LYMPHOCYTIC INFILTRATION [None]
